FAERS Safety Report 23140070 (Version 5)
Quarter: 2024Q1

REPORT INFORMATION
  Report Type: Spontaneous
  Country: US (occurrence: US)
  Receive Date: 20231102
  Receipt Date: 20240207
  Transmission Date: 20240410
  Serious: No
  Sender: FDA-Public Use
  Company Number: US-PFIZER INC-PV202300176804

PATIENT
  Age: 71 Year
  Sex: Female

DRUGS (2)
  1. PREMARIN [Suspect]
     Active Substance: ESTROGENS, CONJUGATED
     Dosage: PREMARIN WITH DINNER
  2. PREMARIN [Suspect]
     Active Substance: ESTROGENS, CONJUGATED
     Dosage: UNK
     Dates: start: 20231012

REACTIONS (6)
  - Musculoskeletal stiffness [Unknown]
  - Brain fog [Unknown]
  - Insomnia [Unknown]
  - Fatigue [Unknown]
  - Energy increased [Unknown]
  - Impatience [Unknown]
